FAERS Safety Report 5698020-2 (Version None)
Quarter: 2008Q2

REPORT INFORMATION
  Report Type: 
  Country: None (occurrence: None)
  Receive Date: 20080408
  Receipt Date: 20080331
  Transmission Date: 20081010
  Serious: Yes (Other)
  Sender: FDA-Public Use
  Company Number: GB-PFIZER INC-2008027877

PATIENT
  Sex: Female
  Weight: 132 kg

DRUGS (1)
  1. XALATAN [Suspect]
     Indication: GLAUCOMA
     Route: 047
     Dates: start: 20020101, end: 20080301

REACTIONS (3)
  - CONJUNCTIVITIS [None]
  - EYE INFECTION [None]
  - OCULAR DISCOMFORT [None]
